FAERS Safety Report 25459355 (Version 3)
Quarter: 2025Q3

REPORT INFORMATION
  Report Type: Report from Study
  Country: US (occurrence: US)
  Receive Date: 20250620
  Receipt Date: 20250807
  Transmission Date: 20251021
  Serious: Yes (Other)
  Sender: SUNOVION
  Company Number: US-SMPA-2025SPA006718AA

PATIENT
  Age: 65 Year
  Sex: Male

DRUGS (16)
  1. ORGOVYX [Suspect]
     Active Substance: RELUGOLIX
     Indication: Prostate cancer
     Route: 048
  2. ORGOVYX [Suspect]
     Active Substance: RELUGOLIX
     Dosage: 120 MG, QD
     Route: 048
  3. DIGOXIN [Concomitant]
     Active Substance: DIGOXIN
  4. DILTIAZEM [Concomitant]
     Active Substance: DILTIAZEM
  5. ESOMEPRAZOLE [Concomitant]
     Active Substance: ESOMEPRAZOLE
  6. FLECAINIDE ACETATE [Concomitant]
     Active Substance: FLECAINIDE ACETATE
  7. FLONASE [Concomitant]
     Active Substance: FLUTICASONE PROPIONATE
  8. METFORMIN [Concomitant]
     Active Substance: METFORMIN HYDROCHLORIDE
  9. OZEMPIC [Concomitant]
     Active Substance: SEMAGLUTIDE
  10. Calcium 600 plus vitamin d3 [Concomitant]
  11. TAMSULOSIN [Concomitant]
     Active Substance: TAMSULOSIN
  12. VITAMINS [Concomitant]
     Active Substance: VITAMINS
  13. VITAMIN C [Concomitant]
     Active Substance: ASCORBIC ACID
  14. METHYLPREDNISOLONE [Concomitant]
     Active Substance: METHYLPREDNISOLONE
  15. OMEPRAZOLE [Concomitant]
     Active Substance: OMEPRAZOLE
  16. CALCIUM [Concomitant]
     Active Substance: CALCIUM

REACTIONS (10)
  - Arrhythmia [Unknown]
  - Dysuria [Unknown]
  - Nocturia [Unknown]
  - Urinary hesitation [Unknown]
  - Pain [Unknown]
  - Abdominal discomfort [Unknown]
  - Nausea [Unknown]
  - Constipation [Unknown]
  - Fatigue [Unknown]
  - Headache [Unknown]
